FAERS Safety Report 7593731-6 (Version None)
Quarter: 2011Q3

REPORT INFORMATION
  Report Type: 
  Country: None (occurrence: None)
  Receive Date: 20110706
  Receipt Date: 20110623
  Transmission Date: 20111222
  Serious: Yes (Other)
  Sender: FDA-Public Use
  Company Number: PHHY2009JP14828

PATIENT
  Sex: Male

DRUGS (10)
  1. TASIGNA [Suspect]
     Indication: CHRONIC MYELOID LEUKAEMIA
     Dosage: 800 MG
     Route: 048
     Dates: start: 20090328, end: 20100729
  2. SPIRIVA [Concomitant]
     Indication: CHRONIC OBSTRUCTIVE PULMONARY DISEASE
     Dosage: 18 UG, UNK
     Dates: start: 20090401
  3. VERAPAMIL HCL [Concomitant]
     Dosage: 120 MG
     Route: 048
     Dates: start: 20090328, end: 20100412
  4. METHYCOBAL [Concomitant]
     Dosage: 1500 UG
     Route: 048
     Dates: start: 20090328
  5. TASIGNA [Suspect]
     Dosage: 600 MG, DAILY
     Dates: start: 20100730
  6. PRAVASTATIN SODIUM [Concomitant]
     Dosage: 10 MG
     Route: 048
     Dates: start: 20090328
  7. FERRUM [Concomitant]
     Dosage: 305 MG
     Route: 048
     Dates: start: 20090328
  8. TAMSULOSIN HCL [Concomitant]
     Indication: BENIGN PROSTATIC HYPERPLASIA
     Dosage: 0.2 MG, UNK
     Route: 048
     Dates: start: 20090723
  9. THEO-DUR [Concomitant]
     Dosage: 300 MG
     Route: 048
     Dates: start: 20090328
  10. ALVESCO [Concomitant]
     Dosage: 400 UG
     Route: 048
     Dates: start: 20090428

REACTIONS (3)
  - PYREXIA [None]
  - LIPASE INCREASED [None]
  - ELECTROCARDIOGRAM QT PROLONGED [None]
